FAERS Safety Report 22982772 (Version 2)
Quarter: 2023Q4

REPORT INFORMATION
  Report Type: Report from Study
  Country: EG (occurrence: EG)
  Receive Date: 20230926
  Receipt Date: 20231005
  Transmission Date: 20240110
  Serious: Yes (Other)
  Sender: FDA-Public Use
  Company Number: EG-002147023-NVSC2023EG206848

PATIENT
  Age: 44 Year
  Sex: Male

DRUGS (8)
  1. ENTRESTO [Suspect]
     Active Substance: SACUBITRIL\VALSARTAN
     Indication: Cardiac failure
     Dosage: 0.5 DOSAGE FORM, BID
     Route: 048
     Dates: start: 202303
  2. ASPIRIN [Concomitant]
     Active Substance: ASPIRIN
     Indication: Tilt table test
     Dosage: 1 DOSAGE FORM, BID (BEFORE ENTRESTO)
     Route: 065
     Dates: start: 20160828
  3. ASPIRIN [Concomitant]
     Active Substance: ASPIRIN
     Dosage: 1 DOSAGE FORM, QD (AFTER ENTRESTO)
     Route: 065
  4. CLATEX [Concomitant]
     Indication: Tilt table test
     Dosage: 1 DOSAGE FORM, QD
     Route: 065
     Dates: start: 20160828
  5. ALLOPURINOL [Concomitant]
     Active Substance: ALLOPURINOL
     Indication: Gout
     Dosage: 1 DOSAGE FORM, TID (WHEN NEEDED WHEN HIS GOUT REBOUNDS)
     Route: 065
     Dates: start: 20160828
  6. URIVIN [Concomitant]
     Indication: Gout
     Dosage: 1 DOSAGE FORM, TID (WHEN NEEDED WHEN HIS GOUT REBOUNDS)
     Route: 065
     Dates: start: 20160828
  7. ALDACTONE [Concomitant]
     Active Substance: SPIRONOLACTONE
     Indication: Hypertension
     Dosage: 1 DOSAGE FORM, QD (STOPPED WHEN BEING ON ENTRESTO AS HIS HTN BECOME STABLE ON ENTRESTO)
     Route: 065
     Dates: start: 20160828
  8. LASIX [Concomitant]
     Active Substance: FUROSEMIDE
     Indication: Tilt table test
     Dosage: 1/2 TAB DAILY AND WHEN HE SUFFERS FROM SOB HE TAKES ONE TAB/DAY
     Route: 048
     Dates: start: 20160828

REACTIONS (13)
  - Anal fistula [Unknown]
  - Dermal cyst [Not Recovered/Not Resolved]
  - Apnoea [Recovering/Resolving]
  - Hypotension [Recovering/Resolving]
  - Dyspnoea [Recovering/Resolving]
  - Feeling hot [Not Recovered/Not Resolved]
  - Hyperhidrosis [Not Recovered/Not Resolved]
  - Dysstasia [Not Recovered/Not Resolved]
  - Pain [Unknown]
  - Blood triglycerides increased [Unknown]
  - Procedural pain [Unknown]
  - Wrong technique in product usage process [Unknown]
  - Drug ineffective [Unknown]

NARRATIVE: CASE EVENT DATE: 20230301
